FAERS Safety Report 9720375 (Version 1)
Quarter: 2013Q4

REPORT INFORMATION
  Report Type: Spontaneous
  Country: US (occurrence: US)
  Receive Date: 20131129
  Receipt Date: 20131129
  Transmission Date: 20140711
  Serious: No
  Sender: FDA-Public Use
  Company Number: US-B.I. PHARMACEUTICALS,INC./RIDGEFIELD-2013-BI-38215BP

PATIENT
  Age: 55 Year
  Sex: Female

DRUGS (18)
  1. SPIRIVA [Suspect]
     Indication: CHRONIC OBSTRUCTIVE PULMONARY DISEASE
     Dosage: 18 MCG
     Route: 055
     Dates: start: 201310, end: 201310
  2. CRESTOR [Concomitant]
     Indication: BLOOD CHOLESTEROL INCREASED
     Dosage: 20 MG
     Route: 048
     Dates: start: 2011
  3. FAMOTIDINE [Concomitant]
     Indication: GASTROOESOPHAGEAL REFLUX DISEASE
     Dates: start: 2009
  4. LYRICA [Concomitant]
     Indication: NEUROPATHY PERIPHERAL
     Dosage: 150 MG
     Route: 048
     Dates: start: 2011
  5. BYSTOLIC [Concomitant]
     Indication: HYPERTENSION
     Dosage: 10 MG
     Route: 048
     Dates: start: 201308
  6. VICTOZA [Concomitant]
     Indication: DIABETES MELLITUS
     Dosage: 1.8 MG
     Route: 048
     Dates: start: 2012
  7. TOPAMAX [Concomitant]
     Indication: HEADACHE
     Dosage: 200 MG
     Route: 048
     Dates: start: 2011
  8. TOPAMAX [Concomitant]
     Indication: MUSCLE SPASMS
  9. TRILIPIX [Concomitant]
     Indication: BLOOD CHOLESTEROL INCREASED
     Dosage: 135 MG
     Route: 048
     Dates: start: 2013
  10. DULERA [Concomitant]
     Indication: CHRONIC OBSTRUCTIVE PULMONARY DISEASE
     Dosage: 2 PUF
     Route: 055
     Dates: start: 2011
  11. AXERT [Concomitant]
     Indication: MIGRAINE
     Route: 048
     Dates: end: 2009
  12. PRISTIQ [Concomitant]
     Indication: DEPRESSION
     Dosage: 100 MG
     Route: 048
     Dates: start: 2012
  13. PRAVASTATIN [Concomitant]
     Indication: BLOOD CHOLESTEROL INCREASED
     Dosage: 40 MG
     Route: 048
     Dates: start: 2011
  14. GLIPIZIDE [Concomitant]
     Indication: DIABETES MELLITUS
     Dosage: 5 MG
     Route: 048
     Dates: start: 2008
  15. FUROSEMIDE [Concomitant]
     Indication: HYPERTENSION
     Dosage: 40 MG
     Route: 048
     Dates: start: 2011
  16. METOPROLOL [Concomitant]
     Indication: ANGINA PECTORIS
     Dosage: 50 MG
     Route: 048
     Dates: start: 2011
  17. METOPROLOL [Concomitant]
     Indication: HYPERTENSION
  18. NITROGYCERIN [Concomitant]
     Indication: ANGINA PECTORIS
     Dates: start: 2012

REACTIONS (2)
  - Epistaxis [Recovered/Resolved]
  - Dyspnoea [Recovered/Resolved]
